FAERS Safety Report 12625491 (Version 3)
Quarter: 2016Q3

REPORT INFORMATION
  Report Type: Report from Study
  Country: RU (occurrence: RU)
  Receive Date: 20160805
  Receipt Date: 20160829
  Transmission Date: 20161109
  Serious: Yes (Life-Threatening, Hospitalization)
  Sender: FDA-Public Use
  Company Number: RU-ASTRAZENECA-2016SE53268

PATIENT
  Age: 79 Year
  Sex: Male
  Weight: 90 kg

DRUGS (8)
  1. METIPRED [Concomitant]
     Active Substance: METHYLPREDNISOLONE
     Indication: RHEUMATOID ARTHRITIS
     Route: 048
  2. BISOPROLOL [Concomitant]
     Active Substance: BISOPROLOL
  3. PRESTARIUM A [Concomitant]
     Active Substance: PERINDOPRIL ARGININE
  4. ACTILYSE [Concomitant]
     Active Substance: ALTEPLASE
  5. BRILINTA [Suspect]
     Active Substance: TICAGRELOR
     Indication: MYOCARDIAL INFARCTION
     Route: 048
     Dates: start: 20160428
  6. ENOXAPARIN [Concomitant]
     Active Substance: ENOXAPARIN
  7. CARDIOMAGNYL [Concomitant]
     Active Substance: ASPIRIN\MAGNESIUM HYDROXIDE
  8. INTEGRILIN [Concomitant]
     Active Substance: EPTIFIBATIDE

REACTIONS (3)
  - Vascular stent thrombosis [Unknown]
  - Myocardial infarction [Recovered/Resolved with Sequelae]
  - Drug dose omission [Recovered/Resolved with Sequelae]

NARRATIVE: CASE EVENT DATE: 20160506
